FAERS Safety Report 22653049 (Version 1)
Quarter: 2023Q2

REPORT INFORMATION
  Report Type: Report from Study
  Country: CZ (occurrence: CZ)
  Receive Date: 20230629
  Receipt Date: 20230629
  Transmission Date: 20230721
  Serious: Yes (Life-Threatening)
  Sender: FDA-Public Use
  Company Number: CZ-ABBVIE-5308207

PATIENT
  Age: 50 Year
  Sex: Male

DRUGS (2)
  1. RINVOQ [Suspect]
     Active Substance: UPADACITINIB
     Indication: Dermatitis atopic
     Route: 048
     Dates: start: 20230302
  2. TELMISARTAN [Concomitant]
     Active Substance: TELMISARTAN
     Indication: Product used for unknown indication

REACTIONS (5)
  - Hepatorenal syndrome [Unknown]
  - Cerebral haemorrhage [Unknown]
  - Acute kidney injury [Unknown]
  - Endocarditis [Unknown]
  - Sepsis [Unknown]

NARRATIVE: CASE EVENT DATE: 20230303
